FAERS Safety Report 9294180 (Version 1)
Quarter: 2013Q1

REPORT INFORMATION
  Report Type: Spontaneous
  Country: US (occurrence: None)
  Receive Date: 20121218
  Receipt Date: 20121218
  Transmission Date: 20140127
  Serious: Yes (Other)
  Sender: FDA-Public Use
  Company Number: PHEH2012US003530

PATIENT
  Age: 84 Year
  Sex: Female
  Weight: 176 kg

DRUGS (10)
  1. FEMARA [Suspect]
  2. AROMASIN (EXEMESTANE) [Suspect]
  3. ASPIRIN (ACETYLSALICYLIC ACID) [Suspect]
  4. HYDROCHLOROTHIAZIDE (HYDROCHLOROTHIAZIDE) [Suspect]
  5. HYDROCODONE (HYDROCODONE) [Suspect]
  6. ACETAMINOPHEN (PARACETAMOL) [Suspect]
  7. METOPROLOL SUCCINATE (METOPROLOL SUCCINATE) [Suspect]
  8. MICARDIS (TELMISARTAN) [Suspect]
  9. NORVASC (AMLODIPINE BESILATE) [Suspect]
  10. SIMVASTATIN (SIMVASTATIN) [Suspect]

REACTIONS (5)
  - Neoplasm [None]
  - Malignant neoplasm progression [None]
  - Metastases to lung [None]
  - Metastases to bone [None]
  - Breast cancer [None]
